FAERS Safety Report 9498440 (Version 2)
Quarter: 2013Q4

REPORT INFORMATION
  Report Type: Spontaneous
  Country: JP (occurrence: JP)
  Receive Date: 20130904
  Receipt Date: 20131230
  Transmission Date: 20140711
  Serious: Yes (Other)
  Sender: FDA-Public Use
  Company Number: JP-GLAXOSMITHKLINE-B0918475A

PATIENT
  Age: 39 Year
  Sex: Male

DRUGS (5)
  1. LAMICTAL [Suspect]
     Indication: EPILEPSY
     Dosage: 75MG TWICE PER DAY
     Route: 048
     Dates: start: 201008, end: 201010
  2. ALEVIATIN [Concomitant]
     Dosage: 85MG TWICE PER DAY
     Route: 048
  3. DEPAKENE [Concomitant]
     Dosage: 600MG TWICE PER DAY
     Route: 048
  4. EXCEGRAN [Concomitant]
     Dosage: 110MG TWICE PER DAY
     Route: 048
  5. PHENOBAL [Concomitant]

REACTIONS (3)
  - Renal impairment [Recovered/Resolved]
  - Rash [Recovered/Resolved]
  - Hepatic function abnormal [Recovered/Resolved]
